FAERS Safety Report 15171357 (Version 2)
Quarter: 2018Q3

REPORT INFORMATION
  Report Type: Spontaneous
  Country: ES (occurrence: ES)
  Receive Date: 20180720
  Receipt Date: 20180817
  Transmission Date: 20181010
  Serious: Yes (Other)
  Sender: FDA-Public Use
  Company Number: ES-JNJFOC-20180716785

PATIENT
  Age: 50 Year
  Sex: Male

DRUGS (5)
  1. COCAINE [Suspect]
     Active Substance: COCAINE
     Indication: DEPENDENCE
     Route: 065
  2. TOPIRAMATE. [Suspect]
     Active Substance: TOPIRAMATE
     Indication: PRODUCT USED FOR UNKNOWN INDICATION
     Route: 048
  3. XEPLION [Suspect]
     Active Substance: PALIPERIDONE PALMITATE
     Indication: PRODUCT USED FOR UNKNOWN INDICATION
     Route: 030
     Dates: start: 201312
  4. ALCOHOL. [Suspect]
     Active Substance: ALCOHOL
     Indication: DEPENDENCE
     Route: 065
  5. NALTREXONE [Suspect]
     Active Substance: NALTREXONE
     Indication: PRODUCT USED FOR UNKNOWN INDICATION
     Route: 065

REACTIONS (6)
  - Drug dose omission [Unknown]
  - Incorrect dose administered [Unknown]
  - Off label use [Unknown]
  - Thrombocytopenia [Recovered/Resolved]
  - Psychotic disorder [Unknown]
  - Treatment noncompliance [Unknown]

NARRATIVE: CASE EVENT DATE: 201312
